FAERS Safety Report 13092966 (Version 1)
Quarter: 2017Q1

REPORT INFORMATION
  Report Type: Spontaneous
  Country: US (occurrence: US)
  Receive Date: 20170106
  Receipt Date: 20170106
  Transmission Date: 20170428
  Serious: No
  Sender: FDA-Public Use
  Company Number: US-DRREDDYS-USA/USA/16/0084517

PATIENT
  Age: 56 Year
  Sex: Female

DRUGS (6)
  1. NICOTINE. [Suspect]
     Active Substance: NICOTINE
     Route: 061
  2. NICOTINE. [Suspect]
     Active Substance: NICOTINE
     Route: 061
  3. NICOTINE. [Suspect]
     Active Substance: NICOTINE
     Route: 061
  4. NICOTINE. [Suspect]
     Active Substance: NICOTINE
     Route: 061
  5. NICOTINE. [Suspect]
     Active Substance: NICOTINE
     Indication: SMOKING CESSATION THERAPY
     Route: 061
  6. NICOTINE. [Suspect]
     Active Substance: NICOTINE
     Route: 061

REACTIONS (6)
  - Application site erythema [Recovered/Resolved]
  - Nicotine dependence [Unknown]
  - Treatment noncompliance [Unknown]
  - Weight increased [Unknown]
  - Nausea [Not Recovered/Not Resolved]
  - Inappropriate schedule of drug administration [Unknown]
